FAERS Safety Report 5878214-3 (Version None)
Quarter: 2008Q3

REPORT INFORMATION
  Report Type: 
  Country: None (occurrence: None)
  Receive Date: 20080911
  Receipt Date: 20080901
  Transmission Date: 20090109
  Serious: Yes (Hospitalization, Other)
  Sender: FDA-Public Use
  Company Number: CH-WYE-G02090808

PATIENT
  Age: 22 Year
  Sex: Female

DRUGS (8)
  1. EFFEXOR [Suspect]
     Route: 048
     Dates: start: 20071201, end: 20080101
  2. EFFEXOR [Suspect]
     Route: 048
     Dates: start: 20080101, end: 20080116
  3. METHADONE HCL [Concomitant]
     Route: 048
     Dates: start: 20060101
  4. VALPROATE SODIUM [Concomitant]
     Route: 048
     Dates: start: 20071101
  5. CITALOPRAM HYDROBROMIDE [Suspect]
     Indication: APATHY
     Route: 048
     Dates: start: 20080111, end: 20080116
  6. CITALOPRAM HYDROBROMIDE [Suspect]
     Indication: PERSONALITY CHANGE
  7. LYRICA [Suspect]
     Route: 048
     Dates: start: 20080111, end: 20080114
  8. LYRICA [Suspect]
     Route: 048
     Dates: start: 20080115, end: 20080117

REACTIONS (6)
  - AGGRESSION [None]
  - AGITATION [None]
  - DRUG WITHDRAWAL SYNDROME [None]
  - IRRITABILITY [None]
  - PERSECUTORY DELUSION [None]
  - PSYCHOMOTOR HYPERACTIVITY [None]
